FAERS Safety Report 5567658-5 (Version None)
Quarter: 2007Q4

REPORT INFORMATION
  Report Type: 
  Country: None (occurrence: None)
  Receive Date: 20071217
  Receipt Date: 20071113
  Transmission Date: 20080405
  Serious: No
  Sender: FDA-Public Use
  Company Number: ADE# 07-027

PATIENT
  Sex: Female

DRUGS (1)
  1. PHENTERMINE HCL [Suspect]
     Indication: WEIGHT CONTROL
     Dosage: 1 TABLET DAILY

REACTIONS (5)
  - ASTHENIA [None]
  - FEELING ABNORMAL [None]
  - NAUSEA [None]
  - PHARMACEUTICAL PRODUCT COMPLAINT [None]
  - STOMACH DISCOMFORT [None]
